FAERS Safety Report 9268797 (Version 2)
Quarter: 2013Q3

REPORT INFORMATION
  Report Type: Spontaneous
  Country: JP (occurrence: JP)
  Receive Date: 20130502
  Receipt Date: 20130705
  Transmission Date: 20140515
  Serious: Yes (Hospitalization)
  Sender: FDA-Public Use
  Company Number: JP-B.I. PHARMACEUTICALS,INC./RIDGEFIELD-2013-BI-12159NB

PATIENT
  Age: 68 Year
  Sex: Female
  Weight: 60.4 kg

DRUGS (6)
  1. PRAZAXA [Suspect]
     Indication: ATRIAL FIBRILLATION
     Dosage: 220 MG
     Route: 048
     Dates: start: 20121128, end: 20130408
  2. LIPITOR [Concomitant]
     Dosage: 5 MG
     Route: 048
  3. BAYASPIRIN [Concomitant]
     Dosage: 100 MG
     Route: 048
  4. TAKEPRON [Concomitant]
     Dosage: 15 MG
     Route: 048
  5. NORVASC [Concomitant]
     Dosage: 2.5 MG
     Route: 048
  6. DEPAS [Concomitant]
     Dosage: 0.5 MG
     Route: 048

REACTIONS (1)
  - Cerebral infarction [Not Recovered/Not Resolved]
